FAERS Safety Report 17963191 (Version 1)
Quarter: 2020Q2

REPORT INFORMATION
  Report Type: Report from Study
  Country: None (occurrence: US)
  Receive Date: 20200630
  Receipt Date: 20200630
  Transmission Date: 20200714
  Serious: No
  Sender: FDA-Public Use
  Company Number: US-BIOVITRUM-2019US4529

PATIENT
  Age: 27 Year
  Sex: Female

DRUGS (2)
  1. KINERET [Suspect]
     Active Substance: ANAKINRA
     Indication: PERICARDITIS
     Route: 058
     Dates: start: 20190624
  2. KINERET [Suspect]
     Active Substance: ANAKINRA
     Route: 058
     Dates: start: 20190625

REACTIONS (6)
  - Arthralgia [Unknown]
  - Off label use [Not Recovered/Not Resolved]
  - Pain in extremity [Unknown]
  - Oropharyngeal pain [Unknown]
  - Headache [Unknown]
  - Bronchitis [Unknown]

NARRATIVE: CASE EVENT DATE: 201911
